FAERS Safety Report 5460395-7 (Version None)
Quarter: 2007Q3

REPORT INFORMATION
  Report Type: 
  Country: None (occurrence: None)
  Receive Date: 20070919
  Receipt Date: 20070710
  Transmission Date: 20080115
  Serious: No
  Sender: FDA-Public Use
  Company Number: US-ASTRAZENECA-2007UW16162

PATIENT
  Age: 71 Year
  Sex: Female
  Weight: 99.8 kg

DRUGS (9)
  1. SEROQUEL [Suspect]
     Indication: SLEEP DISORDER DUE TO A GENERAL MEDICAL CONDITION
     Route: 048
     Dates: start: 20070101
  2. FENTANYL [Suspect]
     Route: 062
  3. CYMBALTA [Concomitant]
  4. XANAX [Concomitant]
  5. LOTENSIN [Concomitant]
  6. NORVASC [Concomitant]
  7. SYNTHROID [Concomitant]
  8. NEXIUM [Concomitant]
  9. FLUID PILLS [Concomitant]

REACTIONS (3)
  - ABASIA [None]
  - BALANCE DISORDER [None]
  - PAIN IN EXTREMITY [None]
